FAERS Safety Report 7429712-2 (Version None)
Quarter: 2011Q2

REPORT INFORMATION
  Report Type: 
  Country: None (occurrence: None)
  Receive Date: 20110421
  Receipt Date: 20110413
  Transmission Date: 20111010
  Serious: Yes (Other)
  Sender: FDA-Public Use
  Company Number: FR-BRISTOL-MYERS SQUIBB COMPANY-15676331

PATIENT
  Age: 47 Year
  Sex: Female

DRUGS (9)
  1. EPIVIR [Suspect]
     Dosage: ALSO IN 2003, DEC07, MAR08,APR09.
     Dates: start: 20020601
  2. KALETRA [Suspect]
     Dosage: ALSO IN JAN2011
     Dates: start: 20090401
  3. TRUVADA [Suspect]
     Dates: start: 20110101
  4. VIRAMUNE [Suspect]
     Dates: start: 20020601
  5. TELZIR [Suspect]
     Dates: start: 20030101
  6. SUSTIVA [Suspect]
     Dates: start: 20071201
  7. REYATAZ [Suspect]
     Dates: start: 20080301
  8. VIDEX [Suspect]
     Dosage: ALSO IN 2003,DEC07,MAR08,APR09,
     Dates: start: 20020601, end: 20101201
  9. NORVIR [Suspect]
     Dosage: ALSO IN MAR08
     Dates: start: 20030101

REACTIONS (2)
  - HEPATIC CIRRHOSIS [None]
  - HAEMATOMA [None]
